FAERS Safety Report 20138165 (Version 1)
Quarter: 2021Q4

REPORT INFORMATION
  Report Type: Spontaneous
  Country: AU (occurrence: AU)
  Receive Date: 20211202
  Receipt Date: 20211202
  Transmission Date: 20220303
  Serious: Yes (Other)
  Sender: FDA-Public Use
  Company Number: AU-ALKEM LABORATORIES LIMITED-AU-ALKEM-2021-07148

PATIENT
  Age: 18 Year
  Sex: Female

DRUGS (5)
  1. MYCOPHENOLATE MOFETIL [Suspect]
     Active Substance: MYCOPHENOLATE MOFETIL
     Indication: Product used for unknown indication
     Dosage: UNK
     Route: 005
  2. ROMIPLOSTIM [Suspect]
     Active Substance: ROMIPLOSTIM
     Indication: Product used for unknown indication
     Dosage: UNK
     Route: 065
  3. ELTROMBOPAG [Suspect]
     Active Substance: ELTROMBOPAG
     Indication: Product used for unknown indication
     Dosage: UNK
     Route: 065
  4. RITUXIMAB [Suspect]
     Active Substance: RITUXIMAB
     Indication: Product used for unknown indication
     Dosage: UNK
     Route: 065
  5. PREDNISOLONE [Suspect]
     Active Substance: PREDNISOLONE
     Indication: Product used for unknown indication
     Dosage: UNK
     Route: 065

REACTIONS (11)
  - Haemorrhage intracranial [Unknown]
  - Platelet glycoprotein gene mutation [Unknown]
  - Thrombocytopenia [Unknown]
  - Drug ineffective [Unknown]
  - Heavy menstrual bleeding [Unknown]
  - Mental disorder [Unknown]
  - Platelet count decreased [Unknown]
  - Biopsy bone marrow abnormal [Unknown]
  - Purpura [Unknown]
  - Headache [Unknown]
  - Thrombocytosis [Unknown]
